FAERS Safety Report 15968433 (Version 1)
Quarter: 2019Q1

REPORT INFORMATION
  Report Type: Spontaneous
  Country: CH (occurrence: CH)
  Receive Date: 20190215
  Receipt Date: 20190215
  Transmission Date: 20190418
  Serious: Yes (Death, Hospitalization)
  Sender: FDA-Public Use
  Company Number: CH-009507513-1902CHE004952

PATIENT
  Age: 57 Year
  Sex: Male
  Weight: 72 kg

DRUGS (1)
  1. KEYTRUDA [Suspect]
     Active Substance: PEMBROLIZUMAB
     Indication: MALIGNANT MELANOMA
     Dosage: 200 MILLIGRAM, ONCE EVERY THREE WEEKS
     Route: 050
     Dates: start: 20180912, end: 201810

REACTIONS (3)
  - Myositis [Fatal]
  - Hepatitis [Fatal]
  - Myocarditis [Fatal]

NARRATIVE: CASE EVENT DATE: 201810
